FAERS Safety Report 14012552 (Version 2)
Quarter: 2017Q4

REPORT INFORMATION
  Report Type: Report from Study
  Country: US (occurrence: US)
  Receive Date: 20170926
  Receipt Date: 20171003
  Transmission Date: 20180321
  Serious: Yes (Hospitalization, Other)
  Sender: FDA-Public Use
  Company Number: US-GILEAD-2017-0294782

PATIENT
  Age: 56 Year
  Sex: Male

DRUGS (15)
  1. CHOLECALCIFEROL [Concomitant]
     Active Substance: CHOLECALCIFEROL
  2. TIOTROPIUM [Concomitant]
     Active Substance: TIOTROPIUM
  3. SILDENAFIL. [Concomitant]
     Active Substance: SILDENAFIL
  4. DULERA [Concomitant]
     Active Substance: FORMOTEROL FUMARATE DIHYDRATE\MOMETASONE FUROATE
  5. GARLIC                             /01570501/ [Concomitant]
     Active Substance: GARLIC
  6. IPRATROPIUM [Concomitant]
     Active Substance: IPRATROPIUM
     Dosage: 10 MG, UNK
     Route: 065
  7. AZITHROMYCIN ANHYDROUS. [Concomitant]
     Active Substance: AZITHROMYCIN ANHYDROUS
  8. DILTIAZEM. [Concomitant]
     Active Substance: DILTIAZEM
  9. OXYGEN. [Concomitant]
     Active Substance: OXYGEN
  10. ALBUTEROL                          /00139501/ [Concomitant]
     Active Substance: ALBUTEROL
  11. FLUTICASONE. [Concomitant]
     Active Substance: FLUTICASONE
  12. MULTIVITAMINES WITH IRON           /02170101/ [Concomitant]
  13. AMBRISENTAN [Suspect]
     Active Substance: AMBRISENTAN
     Indication: PULMONARY HYPERTENSION
     Dosage: 10 MG, UNK
     Route: 048
     Dates: start: 20170329
  14. PREDNISONE. [Concomitant]
     Active Substance: PREDNISONE
  15. MONTELUKAST [Concomitant]
     Active Substance: MONTELUKAST SODIUM

REACTIONS (1)
  - Pneumonia [Recovered/Resolved]
